FAERS Safety Report 9536527 (Version 1)
Quarter: 2013Q3

REPORT INFORMATION
  Report Type: Spontaneous
  Country: US (occurrence: US)
  Receive Date: 20130919
  Receipt Date: 20130919
  Transmission Date: 20140515
  Serious: No
  Sender: FDA-Public Use
  Company Number: US-BAYER-2013-112820

PATIENT
  Age: 75 Year
  Sex: Female
  Weight: 70.3 kg

DRUGS (4)
  1. ALEVE CAPLET [Suspect]
     Indication: HEADACHE
     Dosage: 1 DF, EVERY 6 HOURS
     Route: 048
     Dates: start: 20130917
  2. LEVOFLOXACIN [Concomitant]
  3. LEVOTHYROXINE [Concomitant]
  4. CENTRUM SILVER [Concomitant]

REACTIONS (2)
  - Ear pain [None]
  - Drug ineffective [None]
